FAERS Safety Report 12600397 (Version 2)
Quarter: 2016Q3

REPORT INFORMATION
  Report Type: Report from Study
  Country: US (occurrence: US)
  Receive Date: 20160727
  Receipt Date: 20160819
  Transmission Date: 20161109
  Serious: Yes (Hospitalization, Congenital Anomaly)
  Sender: FDA-Public Use
  Company Number: US-ABBVIE-16K-163-1681938-00

PATIENT
  Sex: Female

DRUGS (2)
  1. HUMIRA [Suspect]
     Active Substance: ADALIMUMAB
     Route: 063
  2. HUMIRA [Suspect]
     Active Substance: ADALIMUMAB
     Indication: MATERNAL EXPOSURE TIMING UNSPECIFIED
     Route: 064

REACTIONS (9)
  - Congenital scoliosis [Not Recovered/Not Resolved]
  - Congenital hand malformation [Not Recovered/Not Resolved]
  - Respiratory failure [Recovered/Resolved]
  - Pneumonia [Recovered/Resolved]
  - Foetal exposure during pregnancy [Unknown]
  - Exposure during breast feeding [Unknown]
  - Talipes [Not Recovered/Not Resolved]
  - Respiratory tract infection [Recovered/Resolved]
  - Congenital umbilical hernia [Not Recovered/Not Resolved]

NARRATIVE: CASE EVENT DATE: 201603
